FAERS Safety Report 19224993 (Version 1)
Quarter: 2021Q2

REPORT INFORMATION
  Report Type: Spontaneous
  Country: US (occurrence: US)
  Receive Date: 20210505
  Receipt Date: 20210505
  Transmission Date: 20210717
  Serious: No
  Sender: FDA-Public Use
  Company Number: US-ROCHE-2773026

PATIENT
  Sex: Male
  Weight: 45.4 kg

DRUGS (1)
  1. ESBRIET [Suspect]
     Active Substance: PIRFENIDONE
     Indication: IDIOPATHIC PULMONARY FIBROSIS
     Dosage: 275 MG TABLETS, THREE TABLETS, THREE TIMES A DAY
     Route: 048

REACTIONS (6)
  - Dysphagia [Unknown]
  - General physical health deterioration [Unknown]
  - Intentional product use issue [Unknown]
  - Unevaluable event [Unknown]
  - Off label use [Unknown]
  - Dementia [Unknown]
